FAERS Safety Report 21453284 (Version 2)
Quarter: 2024Q3

REPORT INFORMATION
  Report Type: Spontaneous
  Country: US (occurrence: US)
  Receive Date: 20221013
  Receipt Date: 20240916
  Transmission Date: 20241017
  Serious: No
  Sender: BIOMARIN
  Company Number: US-SA-SAC20220928000986

PATIENT

DRUGS (1)
  1. LARONIDASE [Suspect]
     Active Substance: LARONIDASE
     Indication: Mucopolysaccharidosis I
     Dosage: 40.6 UNK, QW
     Route: 042
     Dates: start: 20031008

REACTIONS (1)
  - Oxygen saturation decreased [Not Recovered/Not Resolved]
